FAERS Safety Report 7954769-X (Version None)
Quarter: 2011Q4

REPORT INFORMATION
  Report Type: 
  Country: None (occurrence: None)
  Receive Date: 20111202
  Receipt Date: 20111118
  Transmission Date: 20120403
  Serious: Yes (Other)
  Sender: FDA-Public Use
  Company Number: US-BAYER-2011-115787

PATIENT
  Age: 45 Year
  Weight: 63.492 kg

DRUGS (2)
  1. YAZ [Suspect]
     Indication: PREMENSTRUAL SYNDROME
     Dosage: UNK
     Route: 048
     Dates: start: 20090201, end: 20091001
  2. YASMIN [Suspect]
     Route: 048

REACTIONS (4)
  - BILIARY COLIC [None]
  - NAUSEA [None]
  - CHEST DISCOMFORT [None]
  - HYPERHIDROSIS [None]
